FAERS Safety Report 7414213-8 (Version None)
Quarter: 2011Q2

REPORT INFORMATION
  Report Type: 
  Country: None (occurrence: None)
  Receive Date: 20110411
  Receipt Date: 20110411
  Transmission Date: 20111010
  Serious: No
  Sender: FDA-Public Use
  Company Number: None

PATIENT
  Age: 81 Year
  Sex: Female

DRUGS (2)
  1. SINGULAIR [Suspect]
     Dates: start: 20090929, end: 20091016
  2. NITROFURANTOIN [Suspect]
     Dosage: }730 DAYS
     Dates: start: 20070920, end: 20071016

REACTIONS (5)
  - BLOOD BILIRUBIN INCREASED [None]
  - LIVER DISORDER [None]
  - BLOOD ALKALINE PHOSPHATASE INCREASED [None]
  - ALANINE AMINOTRANSFERASE INCREASED [None]
  - ASPARTATE AMINOTRANSFERASE INCREASED [None]
